FAERS Safety Report 4483544-6 (Version None)
Quarter: 2004Q4

REPORT INFORMATION
  Report Type: 
  Country: None (occurrence: None)
  Receive Date: 20041025
  Receipt Date: 20041013
  Transmission Date: 20050328
  Serious: Yes (Hospitalization)
  Sender: FDA-Public Use
  Company Number: US-SOLVAY-00204003714

PATIENT
  Age: 778 Month
  Sex: Female

DRUGS (1)
  1. MARINOL [Suspect]
     Indication: VOMITING
     Route: 048
     Dates: start: 20040923, end: 20040926

REACTIONS (3)
  - DEHYDRATION [None]
  - DRUG INEFFECTIVE [None]
  - ELECTROLYTE IMBALANCE [None]
